FAERS Safety Report 16687105 (Version 1)
Quarter: 2019Q3

REPORT INFORMATION
  Report Type: Spontaneous
  Country: JP (occurrence: JP)
  Receive Date: 20190809
  Receipt Date: 20190809
  Transmission Date: 20191004
  Serious: Yes (Other)
  Sender: FDA-Public Use
  Company Number: JP-TEVA-2019-JP-1091218

PATIENT
  Age: 72 Year
  Sex: Female

DRUGS (3)
  1. NOURIAST [Concomitant]
     Active Substance: ISTRADEFYLLINE
  2. NEUPRO [Concomitant]
     Active Substance: ROTIGOTINE
  3. AZILECT [Suspect]
     Active Substance: RASAGILINE MESYLATE
     Indication: PARKINSON^S DISEASE
     Dosage: 1 MILLIGRAM DAILY;
     Route: 048
     Dates: start: 20190601, end: 20190731

REACTIONS (3)
  - Fracture [Not Recovered/Not Resolved]
  - Blood creatine phosphokinase increased [Not Recovered/Not Resolved]
  - Fall [Not Recovered/Not Resolved]

NARRATIVE: CASE EVENT DATE: 20190731
